FAERS Safety Report 22853408 (Version 3)
Quarter: 2023Q4

REPORT INFORMATION
  Report Type: Report from Study
  Country: US (occurrence: US)
  Receive Date: 20230823
  Receipt Date: 20231220
  Transmission Date: 20240110
  Serious: Yes (Other)
  Sender: FDA-Public Use
  Company Number: US-TAIHO-2022-000827

PATIENT
  Sex: Male

DRUGS (2)
  1. LONSURF [Suspect]
     Active Substance: TIPIRACIL HYDROCHLORIDE\TRIFLURIDINE
     Indication: Colon cancer
     Dosage: CYCLE 1 STARTED ON 03/AUG/2022; CURRENT CYCLE UNKNOWN
     Route: 048
     Dates: start: 20220803
  2. GABAPENTIN [Concomitant]
     Active Substance: GABAPENTIN
     Indication: Product used for unknown indication

REACTIONS (6)
  - Anaemia [Unknown]
  - Product administration error [Unknown]
  - Dysphagia [Unknown]
  - Product dose omission in error [Unknown]
  - Fatigue [Unknown]
  - Weight decreased [Unknown]
